FAERS Safety Report 5287821-0 (Version None)
Quarter: 2007Q2

REPORT INFORMATION
  Report Type: 
  Country: None (occurrence: None)
  Receive Date: 20070402
  Receipt Date: 20070402
  Transmission Date: 20071010
  Serious: Yes (Hospitalization)
  Sender: FDA-Public Use
  Company Number: None

PATIENT
  Sex: Male
  Weight: 52.3 kg

DRUGS (13)
  1. VALPROIC ACID [Suspect]
     Indication: BIPOLAR DISORDER
     Dosage: 500MG BID (PO)
     Route: 048
     Dates: start: 19981001
  2. VALPROIC ACID [Suspect]
     Indication: MOOD ALTERED
     Dosage: 500MG BID (PO)
     Route: 048
     Dates: start: 19981001
  3. QUETIAPINE FUMARATE [Suspect]
     Indication: AGITATION
     Dosage: 200MG BID (PO)
     Route: 048
     Dates: start: 19980201
  4. DOCUSATE [Concomitant]
  5. LACTASE [Concomitant]
  6. MINERAL OIL ENEMA [Concomitant]
  7. ASPIRIN [Concomitant]
  8. SIMVASTATIN [Concomitant]
  9. CARBAZEPINE [Concomitant]
  10. CITALOPRAM HYDROBROMIDE [Concomitant]
  11. LEVOTHYROXINE SODIUM [Concomitant]
  12. FINASTERIDE [Concomitant]
  13. TERAZOSIN HCL [Concomitant]

REACTIONS (4)
  - ABDOMINAL PAIN [None]
  - COLON CANCER [None]
  - CONSTIPATION [None]
  - FAECALOMA [None]
